FAERS Safety Report 5336561-8 (Version None)
Quarter: 2007Q2

REPORT INFORMATION
  Report Type: 
  Country: None (occurrence: None)
  Receive Date: 20070524
  Receipt Date: 20070514
  Transmission Date: 20071010
  Serious: Yes (Hospitalization)
  Sender: FDA-Public Use
  Company Number: 2007AL001987

PATIENT
  Age: 30 Year
  Sex: Male

DRUGS (4)
  1. LORAZEPAM [Suspect]
     Indication: AGITATION
     Dosage: 1 MG;PRN
     Dates: start: 20060401
  2. RISPERIDONE [Concomitant]
  3. VALPROIC ACID [Concomitant]
  4. PIPOTIAZINE [Concomitant]

REACTIONS (3)
  - CONDITION AGGRAVATED [None]
  - RASH ERYTHEMATOUS [None]
  - VASCULITIS [None]
